FAERS Safety Report 5601282-0 (Version None)
Quarter: 2008Q1

REPORT INFORMATION
  Report Type: 
  Country: None (occurrence: None)
  Receive Date: 20080124
  Receipt Date: 20080117
  Transmission Date: 20080703
  Serious: Yes (Hospitalization)
  Sender: FDA-Public Use
  Company Number: B0388324A

PATIENT
  Age: 50 Year
  Sex: Female

DRUGS (6)
  1. ZOPHREN [Suspect]
     Route: 048
     Dates: end: 20050318
  2. MOPRAL [Suspect]
     Route: 048
     Dates: end: 20050318
  3. PARACETAMOL [Concomitant]
     Route: 048
  4. SUFENTA [Concomitant]
     Route: 042
     Dates: start: 20050315, end: 20050315
  5. HYPNOVEL [Concomitant]
     Route: 042
     Dates: start: 20050315, end: 20050315
  6. DIPRIVAN [Concomitant]
     Route: 042
     Dates: start: 20050315, end: 20050315

REACTIONS (2)
  - ACUTE GENERALISED EXANTHEMATOUS PUSTULOSIS [None]
  - TOXIC SKIN ERUPTION [None]
